FAERS Safety Report 4810941-9 (Version None)
Quarter: 2005Q4

REPORT INFORMATION
  Report Type: 
  Country: None (occurrence: None)
  Receive Date: 20051025
  Receipt Date: 20051014
  Transmission Date: 20060501
  Serious: Yes (Hospitalization, Other)
  Sender: FDA-Public Use
  Company Number: 2005143228

PATIENT
  Age: 59 Year
  Sex: Male
  Weight: 81.6475 kg

DRUGS (10)
  1. ZOLOFT [Suspect]
     Indication: RELAXATION THERAPY
     Dosage: 100 MG
  2. ARICEPT [Suspect]
     Indication: DEMENTIA ALZHEIMER'S TYPE
     Dosage: 5 MG (1 IN 1 D)
     Dates: start: 20050811
  3. PLAVIX [Concomitant]
  4. COATED ASPIRIN (ACETYLSALICYLIC ACID) [Concomitant]
  5. ISMO [Concomitant]
  6. TOPROL-XL [Concomitant]
  7. ZOCOR [Concomitant]
  8. SULAR [Concomitant]
  9. VITAMIN C (VITAMIN C) [Concomitant]
  10. VITAMIN B (VITAMIN B) [Concomitant]

REACTIONS (5)
  - ARRHYTHMIA [None]
  - DEMENTIA ALZHEIMER'S TYPE [None]
  - HALLUCINATION, VISUAL [None]
  - INFLUENZA LIKE ILLNESS [None]
  - MYOCARDIAL INFARCTION [None]
